FAERS Safety Report 9474127 (Version 5)
Quarter: 2013Q4

REPORT INFORMATION
  Report Type: Report from Study
  Country: DE (occurrence: DE)
  Receive Date: 20130823
  Receipt Date: 20131022
  Transmission Date: 20140711
  Serious: Yes (Death, Life-Threatening, Hospitalization, Other)
  Sender: FDA-Public Use
  Company Number: PHHY2013DE090256

PATIENT
  Sex: Female
  Weight: 58 kg

DRUGS (4)
  1. AFINITOR [Suspect]
     Indication: BREAST CANCER METASTATIC
     Dosage: 5 MG, QD
     Route: 048
     Dates: start: 20130729, end: 20130814
  2. EXEMESTANE [Concomitant]
     Indication: BREAST CANCER METASTATIC
     Dosage: 25 MG, DAILY
     Route: 048
     Dates: start: 20130729, end: 20130814
  3. BONDRONAT//IBANDRONIC ACID [Concomitant]
     Indication: METASTASES TO BONE
     Dosage: 6 MG, EVERY 4 WEEKS
     Route: 042
     Dates: start: 20110928, end: 20130807
  4. BISPHOSPHONATES [Concomitant]

REACTIONS (11)
  - Eastern Cooperative Oncology Group performance status worsened [Fatal]
  - Malignant neoplasm progression [Fatal]
  - Breast cancer metastatic [Fatal]
  - Leukopenia [Recovering/Resolving]
  - Thrombocytopenia [Not Recovered/Not Resolved]
  - Neutropenia [Recovered/Resolved]
  - Renal venous congestion [Recovered/Resolved]
  - Renal failure [Recovered/Resolved]
  - Blood creatinine increased [Unknown]
  - Flank pain [Recovered/Resolved]
  - C-reactive protein increased [Not Recovered/Not Resolved]
